FAERS Safety Report 19484919 (Version 1)
Quarter: 2021Q3

REPORT INFORMATION
  Report Type: Spontaneous
  Country: JP (occurrence: JP)
  Receive Date: 20210701
  Receipt Date: 20210701
  Transmission Date: 20211014
  Serious: Yes (Hospitalization)
  Sender: FDA-Public Use
  Company Number: JP-JNJFOC-20210600040

PATIENT
  Age: 60 Year
  Sex: Female

DRUGS (5)
  1. REMICADE [Suspect]
     Active Substance: INFLIXIMAB
     Indication: PRODUCT USED FOR UNKNOWN INDICATION
     Dosage: 5 MILLIGRAM/KILOGRAM, QD
     Route: 042
  2. METHOTREXATE. [Suspect]
     Active Substance: METHOTREXATE
     Indication: RHEUMATOID ARTHRITIS
     Route: 048
  3. DERMOVATE [Suspect]
     Active Substance: CLOBETASOL
     Indication: PSORIASIS
     Route: 061
  4. TIGASON [ETRETINATE] [Concomitant]
     Active Substance: ETRETINATE
     Indication: PSORIASIS
     Route: 048
  5. REMICADE [Suspect]
     Active Substance: INFLIXIMAB
     Dosage: 5 MILLIGRAM/KILOGRAM, QD
     Route: 042

REACTIONS (1)
  - Acarodermatitis [Recovered/Resolved]

NARRATIVE: CASE EVENT DATE: 2012
